FAERS Safety Report 10082612 (Version 1)
Quarter: 2014Q2

REPORT INFORMATION
  Report Type: Spontaneous
  Country: GB (occurrence: GB)
  Receive Date: 20140416
  Receipt Date: 20140416
  Transmission Date: 20141212
  Serious: Yes (Other)
  Sender: FDA-Public Use
  Company Number: GB-B.I. PHARMACEUTICALS,INC./RIDGEFIELD-2014-BI-16341UK

PATIENT
  Age: 53 Year
  Sex: Male

DRUGS (5)
  1. PRADAXA [Suspect]
     Indication: ATRIAL FIBRILLATION
     Dosage: 300 MG
     Route: 048
     Dates: start: 20140120, end: 20140218
  2. DIGOXIN [Concomitant]
     Dosage: 250 MG
     Route: 065
     Dates: start: 2007
  3. LOSARTAN [Concomitant]
     Dosage: 100 MG
     Route: 065
     Dates: start: 2005
  4. METOPROLOL [Concomitant]
     Dosage: 100 MG
     Route: 065
     Dates: start: 2006
  5. TADALAFIL [Concomitant]
     Dosage: 5 MG
     Route: 065
     Dates: start: 201311

REACTIONS (1)
  - Dyspnoea exertional [Recovered/Resolved]
